FAERS Safety Report 21806287 (Version 1)
Quarter: 2023Q1

REPORT INFORMATION
  Report Type: Report from Study
  Country: JP (occurrence: JP)
  Receive Date: 20230102
  Receipt Date: 20230102
  Transmission Date: 20230418
  Serious: Yes (Death, Hospitalization, Other)
  Sender: FDA-Public Use
  Company Number: JP-CHUGAI-2021025520

PATIENT
  Age: 77 Year
  Sex: Female
  Weight: 46 kg

DRUGS (28)
  1. BEVACIZUMAB [Suspect]
     Active Substance: BEVACIZUMAB
     Indication: Colon cancer
     Dosage: 296 MILLIGRAM
     Route: 041
     Dates: start: 20210610, end: 20210610
  2. BEVACIZUMAB [Suspect]
     Active Substance: BEVACIZUMAB
     Dosage: 296 MILLIGRAM
     Route: 041
     Dates: start: 20210706, end: 20210817
  3. BEVACIZUMAB [Suspect]
     Active Substance: BEVACIZUMAB
     Dosage: 296 MILLIGRAM
     Route: 041
     Dates: start: 20210907, end: 20210907
  4. BEVACIZUMAB [Suspect]
     Active Substance: BEVACIZUMAB
     Dosage: 296 MILLIGRAM
     Route: 041
     Dates: start: 20210928, end: 20210928
  5. BEVACIZUMAB [Suspect]
     Active Substance: BEVACIZUMAB
     Dosage: 296 MILLIGRAM
     Route: 041
     Dates: start: 20211122
  6. BEVACIZUMAB [Suspect]
     Active Substance: BEVACIZUMAB
     Dosage: 296 MILLIGRAM
     Route: 041
     Dates: start: 20220118, end: 20220118
  7. CAPECITABINE [Suspect]
     Active Substance: CAPECITABINE
     Indication: Colon cancer
     Dosage: 1200 MILLIGRAM
     Route: 048
     Dates: start: 20210610
  8. CAPECITABINE [Suspect]
     Active Substance: CAPECITABINE
     Dosage: 1200 MILLIGRAM
     Route: 048
     Dates: start: 20210706
  9. CAPECITABINE [Suspect]
     Active Substance: CAPECITABINE
     Dosage: 1200 MILLIGRAM
     Route: 048
     Dates: start: 20211214, end: 20211228
  10. IRINOTECAN HYDROCHLORIDE [Concomitant]
     Active Substance: IRINOTECAN HYDROCHLORIDE
     Indication: Colon cancer
     Dosage: 207 MILLIGRAM
     Route: 041
     Dates: start: 20210610, end: 20210610
  11. IRINOTECAN HYDROCHLORIDE [Concomitant]
     Active Substance: IRINOTECAN HYDROCHLORIDE
     Dosage: 207 MILLIGRAM
     Route: 041
  12. IRINOTECAN HYDROCHLORIDE [Concomitant]
     Active Substance: IRINOTECAN HYDROCHLORIDE
     Dosage: 207 MILLIGRAM
     Route: 041
     Dates: start: 20210706
  13. IRINOTECAN HYDROCHLORIDE [Concomitant]
     Active Substance: IRINOTECAN HYDROCHLORIDE
     Dosage: 207 MILLIGRAM
     Route: 041
     Dates: start: 20210907, end: 20210907
  14. IRINOTECAN HYDROCHLORIDE [Concomitant]
     Active Substance: IRINOTECAN HYDROCHLORIDE
     Dosage: 207 MILLIGRAM
     Route: 041
     Dates: start: 20210928, end: 20210928
  15. OXALIPLATIN [Concomitant]
     Active Substance: OXALIPLATIN
     Indication: Colon cancer
     Dosage: UNK
     Route: 041
     Dates: start: 20210610, end: 20210610
  16. OXALIPLATIN [Concomitant]
     Active Substance: OXALIPLATIN
     Dosage: UNK
     Route: 041
     Dates: start: 20210706, end: 20210817
  17. OXALIPLATIN [Concomitant]
     Active Substance: OXALIPLATIN
     Dosage: UNK
     Route: 041
     Dates: start: 20210907, end: 20210917
  18. PALONOSETRON HYDROCHLORIDE [Concomitant]
     Active Substance: PALONOSETRON HYDROCHLORIDE
     Dosage: UNK, ONCE/3WEEKS
     Route: 042
     Dates: start: 20210610, end: 20210610
  19. PALONOSETRON HYDROCHLORIDE [Concomitant]
     Active Substance: PALONOSETRON HYDROCHLORIDE
     Dosage: UNK, ONCE/3WEEKS
     Route: 042
     Dates: start: 20210706, end: 20210928
  20. DEXAMETHASONE SODIUM PHOSPHATE [Concomitant]
     Active Substance: DEXAMETHASONE SODIUM PHOSPHATE
     Dosage: 9.9 MILLIGRAM, ONCE/3WEEKS
     Route: 042
     Dates: start: 20210610, end: 20210610
  21. DEXAMETHASONE SODIUM PHOSPHATE [Concomitant]
     Active Substance: DEXAMETHASONE SODIUM PHOSPHATE
     Dosage: 9.9 MILLIGRAM, ONCE/3WEEKS
     Route: 042
     Dates: start: 20210706, end: 20210928
  22. DEXAMETHASONE [Concomitant]
     Active Substance: DEXAMETHASONE
     Dosage: 8 MILLIGRAM, ONCE/3WEEKS
     Route: 048
     Dates: start: 20210611, end: 20210613
  23. DEXAMETHASONE [Concomitant]
     Active Substance: DEXAMETHASONE
     Dosage: 8 MILLIGRAM, ONCE/3WEEKS
     Route: 048
     Dates: start: 20210706, end: 20211001
  24. APREPITANT [Concomitant]
     Active Substance: APREPITANT
     Dosage: 125 MILLIGRAM, ONCE/3WEEKS
     Route: 048
     Dates: start: 20210610, end: 20210610
  25. APREPITANT [Concomitant]
     Active Substance: APREPITANT
     Dosage: 125 MILLIGRAM, ONCE/3WEEKS
     Route: 048
     Dates: start: 20210611, end: 20210612
  26. APREPITANT [Concomitant]
     Active Substance: APREPITANT
     Dosage: 125 MILLIGRAM, ONCE/3WEEKS
     Route: 048
     Dates: start: 20210610, end: 20210928
  27. APREPITANT [Concomitant]
     Active Substance: APREPITANT
     Dosage: 125 MILLIGRAM, ONCE/3WEEKS
     Route: 048
     Dates: start: 20210611, end: 20210930
  28. LOPERAMIDE HYDROCHLORIDE [Concomitant]
     Active Substance: LOPERAMIDE HYDROCHLORIDE
     Route: 065

REACTIONS (3)
  - Colon cancer [Fatal]
  - Humerus fracture [Not Recovered/Not Resolved]
  - Fall [Unknown]

NARRATIVE: CASE EVENT DATE: 20211029
